FAERS Safety Report 17328001 (Version 1)
Quarter: 2020Q1

REPORT INFORMATION
  Report Type: Spontaneous
  Country: GB (occurrence: GB)
  Receive Date: 20200127
  Receipt Date: 20200127
  Transmission Date: 20200409
  Serious: Yes (Hospitalization)
  Sender: FDA-Public Use
  Company Number: GB-MYLANLABS-2020M1008043

PATIENT

DRUGS (9)
  1. AMOXICILLIN. [Concomitant]
     Active Substance: AMOXICILLIN
     Dosage: UNK
  2. ESOMEPRAZOLE. [Concomitant]
     Active Substance: ESOMEPRAZOLE MAGNESIUM
     Dosage: UNK
  3. CLARITHROMYCIN. [Suspect]
     Active Substance: CLARITHROMYCIN
     Indication: PRODUCT USED FOR UNKNOWN INDICATION
     Dosage: UNK
  4. FUROSEMIDE. [Concomitant]
     Active Substance: FUROSEMIDE
     Dosage: UNK
  5. ISOSORBIDE MONONITRATE. [Concomitant]
     Active Substance: ISOSORBIDE MONONITRATE
     Dosage: UNK
  6. REPAGLINIDE. [Concomitant]
     Active Substance: REPAGLINIDE
     Dosage: UNK
  7. DABIGATRAN [Interacting]
     Active Substance: DABIGATRAN
     Indication: PRODUCT USED FOR UNKNOWN INDICATION
     Dosage: UNK
  8. PREGABALIN. [Concomitant]
     Active Substance: PREGABALIN
     Dosage: UNK
  9. OXYCODONE [Concomitant]
     Active Substance: OXYCODONE
     Dosage: UNK

REACTIONS (3)
  - Haemoglobin decreased [Recovered/Resolved]
  - Melaena [Recovered/Resolved]
  - Drug interaction [Unknown]
